FAERS Safety Report 10418988 (Version 3)
Quarter: 2015Q3

REPORT INFORMATION
  Report Type: Report from Study
  Country: US (occurrence: US)
  Receive Date: 20140829
  Receipt Date: 20150713
  Transmission Date: 20151125
  Serious: Yes (Other)
  Sender: FDA-Public Use
  Company Number: US-BAYER-2014-124975

PATIENT
  Age: 65 Year
  Sex: Male

DRUGS (2)
  1. NEXAVAR [Suspect]
     Active Substance: SORAFENIB
     Indication: HEPATIC CANCER
     Dosage: 200 MG, BID
     Route: 048
     Dates: start: 201408, end: 20140822
  2. NEXAVAR [Suspect]
     Active Substance: SORAFENIB
     Indication: HEPATIC CANCER
     Dosage: 400 MG, BID
     Route: 048
     Dates: start: 20140615, end: 20140818

REACTIONS (9)
  - Vasodilatation [Recovering/Resolving]
  - Constipation [None]
  - Headache [None]
  - Diarrhoea [None]
  - Constipation [Recovered/Resolved]
  - Pruritus [None]
  - Muscle spasms [Recovering/Resolving]
  - Rash [None]
  - Asthenia [None]

NARRATIVE: CASE EVENT DATE: 20140615
